FAERS Safety Report 5326427-1 (Version None)
Quarter: 2007Q2

REPORT INFORMATION
  Report Type: 
  Country: None (occurrence: None)
  Receive Date: 20070516
  Receipt Date: 20070504
  Transmission Date: 20071010
  Serious: Yes (Hospitalization)
  Sender: FDA-Public Use
  Company Number: NL-MERCK-0705NLD00012

PATIENT
  Age: 43 Year
  Sex: Male

DRUGS (4)
  1. HYDRODIURIL [Suspect]
     Indication: HYPERTENSION
     Route: 048
  2. VASOTEC [Suspect]
     Indication: HYPERTENSION
     Route: 048
  3. ATENOLOL [Suspect]
     Route: 048
  4. NIFEDIPINE [Suspect]
     Route: 048

REACTIONS (2)
  - DRUG INEFFECTIVE [None]
  - DRUG LEVEL DECREASED [None]
